FAERS Safety Report 14554497 (Version 1)
Quarter: 2018Q1

REPORT INFORMATION
  Report Type: Report from Study
  Country: US (occurrence: US)
  Receive Date: 20180220
  Receipt Date: 20180220
  Transmission Date: 20180509
  Serious: Yes (Hospitalization, Other)
  Sender: FDA-Public Use
  Company Number: US-GILEAD-2018-0320907

PATIENT
  Age: 72 Year
  Sex: Female

DRUGS (5)
  1. AMBRISENTAN [Suspect]
     Active Substance: AMBRISENTAN
     Indication: PULMONARY HYPERTENSION
  2. METOPROLOL. [Concomitant]
     Active Substance: METOPROLOL
  3. AMBRISENTAN [Suspect]
     Active Substance: AMBRISENTAN
     Indication: HEART DISEASE CONGENITAL
     Dosage: 10 MG, QD
     Route: 065
     Dates: start: 201801
  4. AMBRISENTAN [Suspect]
     Active Substance: AMBRISENTAN
     Indication: CONNECTIVE TISSUE DISORDER
     Dosage: 5 MG, QD
     Route: 048
     Dates: start: 201712
  5. AMBRISENTAN [Suspect]
     Active Substance: AMBRISENTAN
     Indication: TOXICITY TO VARIOUS AGENTS

REACTIONS (11)
  - Diarrhoea [Unknown]
  - Supraventricular tachycardia [Unknown]
  - Wheezing [Unknown]
  - Hypotension [Unknown]
  - Peripheral swelling [Unknown]
  - Pancytopenia [Recovered/Resolved]
  - Pneumonia [Unknown]
  - Dyspnoea [Unknown]
  - Fall [Unknown]
  - Fluid overload [Unknown]
  - Acidosis [Unknown]

NARRATIVE: CASE EVENT DATE: 20180120
